FAERS Safety Report 13730759 (Version 2)
Quarter: 2017Q3

REPORT INFORMATION
  Report Type: Spontaneous
  Country: US (occurrence: US)
  Receive Date: 20170707
  Receipt Date: 20170727
  Transmission Date: 20171127
  Serious: Yes (Death, Hospitalization)
  Sender: FDA-Public Use
  Company Number: US-JNJFOC-20170500636

PATIENT
  Age: 63 Year
  Sex: Female
  Weight: 67.3 kg

DRUGS (4)
  1. XARELTO [Suspect]
     Active Substance: RIVAROXABAN
     Indication: DEEP VEIN THROMBOSIS
     Route: 048
     Dates: start: 20150617, end: 20150708
  2. XARELTO [Suspect]
     Active Substance: RIVAROXABAN
     Indication: DEEP VEIN THROMBOSIS
     Route: 048
     Dates: start: 20150709, end: 20150722
  3. XARELTO [Suspect]
     Active Substance: RIVAROXABAN
     Indication: DEEP VEIN THROMBOSIS
     Route: 048
     Dates: start: 20150709, end: 20150722
  4. XARELTO [Suspect]
     Active Substance: RIVAROXABAN
     Indication: DEEP VEIN THROMBOSIS
     Route: 048
     Dates: start: 20150617, end: 20150708

REACTIONS (3)
  - Coagulopathy [Recovering/Resolving]
  - Gastrointestinal angiodysplasia haemorrhagic [Recovering/Resolving]
  - Cholangiocarcinoma [Fatal]

NARRATIVE: CASE EVENT DATE: 201507
